FAERS Safety Report 7764446-6 (Version None)
Quarter: 2011Q3

REPORT INFORMATION
  Report Type: 
  Country: None (occurrence: None)
  Receive Date: 20110919
  Receipt Date: 20110902
  Transmission Date: 20111222
  Serious: Yes (Hospitalization, Other)
  Sender: FDA-Public Use
  Company Number: AUR-APL-2011-04995

PATIENT
  Age: 74 Year
  Sex: Male

DRUGS (10)
  1. LAMOTRIGINE [Suspect]
     Indication: PRODUCT USED FOR UNKNOWN INDICATION
     Dosage: (600 MG, 1 D),
  2. FUROSEMIDE [Concomitant]
  3. CORDARONE [Suspect]
     Indication: ATRIAL FIBRILLATION
     Dosage: (600 MG, 1 D), ORAL
     Route: 048
     Dates: start: 20110522, end: 20110604
  4. DIGOXIN [Suspect]
     Indication: PRODUCT USED FOR UNKNOWN INDICATION
     Dosage: (0.25 MG, 1 D),
     Dates: start: 20110522, end: 20110604
  5. SIMVASTATIN [Concomitant]
  6. NITROGLYCERIN [Concomitant]
  7. WARFARIN SODIUM [Concomitant]
  8. ENALAPRIL MALEATE [Concomitant]
  9. METOPROLOL TARTRATE [Concomitant]
  10. KEPPRA [Concomitant]

REACTIONS (7)
  - ATRIAL FIBRILLATION [None]
  - VOMITING [None]
  - ACUTE MYOCARDIAL INFARCTION [None]
  - TREMOR [None]
  - ATAXIA [None]
  - BALANCE DISORDER [None]
  - NAUSEA [None]
